FAERS Safety Report 21810514 (Version 1)
Quarter: 2023Q1

REPORT INFORMATION
  Report Type: Spontaneous
  Country: US (occurrence: None)
  Receive Date: 20230102
  Receipt Date: 20230102
  Transmission Date: 20230417
  Serious: Yes (Hospitalization)
  Sender: FDA-Public Use
  Company Number: None

PATIENT
  Sex: Female

DRUGS (1)
  1. TOLVAPTAN [Suspect]
     Active Substance: TOLVAPTAN
     Indication: Lung neoplasm malignant
     Dosage: OTHER FREQUENCY : M, W, AND FRIDAY;?
     Route: 048
     Dates: start: 202212

REACTIONS (1)
  - Blood sodium decreased [None]
